FAERS Safety Report 9039296 (Version 1)
Quarter: 2013Q1

REPORT INFORMATION
  Report Type: Spontaneous
  Country: US (occurrence: None)
  Receive Date: 20130123
  Receipt Date: 20130123
  Transmission Date: 20140127
  Serious: Yes (Death, Life-Threatening, Other)
  Sender: FDA-Public Use
  Company Number: None

PATIENT
  Age: 45 Year
  Sex: Male
  Weight: 72.58 kg

DRUGS (2)
  1. REMODULIN [Suspect]
     Indication: PULMONARY ARTERIAL HYPERTENSION
     Dosage: CONTINUOUS
     Route: 042
     Dates: start: 2009, end: 20111216
  2. LETARIS [Suspect]
     Indication: PULMONARY ARTERIAL HYPERTENSION
     Route: 048
     Dates: start: 2008, end: 20111209

REACTIONS (17)
  - Overdose [None]
  - Flushing [None]
  - Headache [None]
  - Hypotension [None]
  - Nausea [None]
  - Vomiting [None]
  - Diarrhoea [None]
  - Syncope [None]
  - Oedema [None]
  - Dyspnoea [None]
  - Pain in jaw [None]
  - Pain in extremity [None]
  - Renal failure [None]
  - Dialysis [None]
  - Hepatic congestion [None]
  - Multi-organ failure [None]
  - Cardiac failure [None]
